FAERS Safety Report 4910613-6 (Version None)
Quarter: 2006Q1

REPORT INFORMATION
  Report Type: 
  Country: None (occurrence: None)
  Receive Date: 20060210
  Receipt Date: 20060210
  Transmission Date: 20060701
  Serious: Yes (Hospitalization)
  Sender: FDA-Public Use
  Company Number: None

PATIENT
  Age: 53 Year
  Sex: Female
  Weight: 65 kg

DRUGS (9)
  1. TARCEVA [Suspect]
     Indication: RENAL CANCER METASTATIC
     Dosage: 150 MG PO QD
     Route: 048
     Dates: start: 20050930, end: 20051018
  2. AVASTIN [Suspect]
     Indication: RENAL CANCER METASTATIC
     Dosage: 5MG/KG =} 325MG  Q 21WKS
     Dates: start: 20051001
  3. AVASTIN [Suspect]
     Indication: RENAL CANCER METASTATIC
     Dosage: 5MG/KG =} 325MG  Q 21WKS
     Dates: start: 20051012
  4. GLUCOTROL [Concomitant]
  5. RED BLOOD CELLS [Concomitant]
  6. MAGNESIUM OXIDE [Concomitant]
  7. KEFLEX [Concomitant]
  8. VANCOMYCIN [Concomitant]
  9. PROTONIX [Concomitant]

REACTIONS (11)
  - CATHETER RELATED COMPLICATION [None]
  - CELLULITIS [None]
  - FOLLICULITIS [None]
  - HAEMOPTYSIS [None]
  - HEART RATE INCREASED [None]
  - MALNUTRITION [None]
  - NAUSEA [None]
  - RASH [None]
  - RASH MACULAR [None]
  - VAGINAL HAEMORRHAGE [None]
  - VOMITING [None]
